FAERS Safety Report 17758221 (Version 1)
Quarter: 2020Q2

REPORT INFORMATION
  Report Type: Spontaneous
  Country: US (occurrence: US)
  Receive Date: 20200507
  Receipt Date: 20200507
  Transmission Date: 20200714
  Serious: Yes (Other)
  Sender: FDA-Public Use
  Company Number: US-FARMAPROD-202003-0374

PATIENT
  Age: 87 Year
  Sex: Male

DRUGS (4)
  1. OXERVATE [Suspect]
     Active Substance: CENEGERMIN-BKBJ
     Indication: NEUROTROPHIC KERATOPATHY
     Route: 047
     Dates: start: 20200316
  2. MULTIVITAMINE [Concomitant]
  3. VITAMINE C [Concomitant]
     Active Substance: ASCORBIC ACID
  4. VITAMINE D [Concomitant]
     Active Substance: CHOLECALCIFEROL

REACTIONS (8)
  - Drug ineffective [Unknown]
  - Eye pain [Unknown]
  - Periorbital discomfort [Unknown]
  - Photophobia [Not Recovered/Not Resolved]
  - Surgery [Unknown]
  - Condition aggravated [Unknown]
  - Eye swelling [Unknown]
  - Lacrimation increased [Not Recovered/Not Resolved]

NARRATIVE: CASE EVENT DATE: 202004
